FAERS Safety Report 9160836 (Version 1)
Quarter: 2013Q1

REPORT INFORMATION
  Report Type: Spontaneous
  Country: RU (occurrence: None)
  Receive Date: 20130220
  Receipt Date: 20130220
  Transmission Date: 20140127
  Serious: Yes (Other)
  Sender: FDA-Public Use
  Company Number: RU-1196584

PATIENT
  Sex: Female
  Weight: 98 kg

DRUGS (1)
  1. TRAVATAN 0.004 % OPHTHALMIC SOLUTION (TRAVATAN BAK 0.004%) [Suspect]
     Indication: OPEN ANGLE GLAUCOMA
     Dosage: (1 GTT QD OU OPHTHALMIC)
     Dates: start: 20130125, end: 20130128

REACTIONS (7)
  - Hypersensitivity [None]
  - Product tampering [None]
  - Eyelid oedema [None]
  - Conjunctival oedema [None]
  - Conjunctival hyperaemia [None]
  - Eye irritation [None]
  - Lacrimation increased [None]
